FAERS Safety Report 7210072-7 (Version None)
Quarter: 2011Q1

REPORT INFORMATION
  Report Type: 
  Country: None (occurrence: None)
  Receive Date: 20110105
  Receipt Date: 20101221
  Transmission Date: 20110831
  Serious: Yes (Death, Other)
  Sender: FDA-Public Use
  Company Number: JP-GENZYME-THYM-1001394

PATIENT
  Sex: Female
  Weight: 44 kg

DRUGS (61)
  1. PREDNISOLONE ACETATE [Concomitant]
     Indication: PREMEDICATION
     Dosage: 1 DF, QD
     Route: 042
     Dates: start: 20091225, end: 20100101
  2. RED BLOOD CELLS, CONCENTRATED [Concomitant]
     Dosage: 2 U, UNK
     Route: 042
     Dates: start: 20091203, end: 20091203
  3. PLATELETS [Concomitant]
     Dosage: 10 U, UNK
     Route: 042
     Dates: start: 20091127, end: 20091127
  4. PLATELETS [Concomitant]
     Dosage: 10 U, UNK
     Route: 042
     Dates: start: 20091218, end: 20091218
  5. PLATELETS [Concomitant]
     Dosage: 10 U, UNK
     Route: 042
     Dates: start: 20091224, end: 20091224
  6. THIAMINE DISULFIDE B6 B12 COMBINED DRUG [Concomitant]
     Indication: PRODUCT USED FOR UNKNOWN INDICATION
     Dosage: 1 DF, QD
     Route: 042
     Dates: start: 20091126, end: 20091127
  7. THIAMINE DISULFIDE B6 B12 COMBINED DRUG [Concomitant]
     Dosage: 1 DF, QD
     Route: 042
     Dates: start: 20091226, end: 20100108
  8. RINGER'S [Concomitant]
     Indication: PRODUCT USED FOR UNKNOWN INDICATION
     Dosage: 500 ML, BID
     Route: 042
     Dates: start: 20091128, end: 20091201
  9. METHYLPREDNISOLONE SODIUM SUCCINATE [Concomitant]
     Dosage: 1 DF, QD
     Route: 042
     Dates: start: 20091219, end: 20091224
  10. PLATELETS [Concomitant]
     Dosage: 10 U, UNK
     Route: 042
     Dates: start: 20091222, end: 20091222
  11. THYMOGLOBULIN [Suspect]
     Indication: APLASTIC ANAEMIA
     Dosage: 175 MG, QD
     Route: 042
     Dates: start: 20091214, end: 20091218
  12. FLUVOXAMINE MALEATE [Concomitant]
     Indication: DEPRESSION
     Dosage: 1 DF, BID
     Route: 048
     Dates: start: 20091208, end: 20091224
  13. THIAMINE DISULFIDE B6 B12 COMBINED DRUG [Concomitant]
     Dosage: 1 DF, QD
     Route: 042
     Dates: start: 20091202, end: 20091205
  14. THIAMINE DISULFIDE B6 B12 COMBINED DRUG [Concomitant]
     Dosage: 1 DF, QD
     Route: 042
     Dates: start: 20091224, end: 20091225
  15. ACETATED RINGER'S SOLUTION WITH GLUCOSE [Concomitant]
     Indication: PRODUCT USED FOR UNKNOWN INDICATION
     Dosage: 500 ML, QD
     Route: 042
     Dates: start: 20091202, end: 20091205
  16. OMEPRAZOLE SODIUM [Concomitant]
     Indication: PROPHYLAXIS
     Dosage: 1 DF, BID
     Route: 042
     Dates: start: 20091124, end: 20091127
  17. RED BLOOD CELLS, CONCENTRATED [Concomitant]
     Dosage: 2 U, UNK
     Route: 042
     Dates: start: 20091224, end: 20091224
  18. RED BLOOD CELLS, CONCENTRATED [Concomitant]
     Dosage: 2 U, UNK
     Route: 042
     Dates: start: 20100108, end: 20100108
  19. PLATELETS [Concomitant]
     Dosage: 10 U, UNK
     Route: 042
     Dates: start: 20091228, end: 20091228
  20. PLATELETS [Concomitant]
     Dosage: 10 U, UNK
     Route: 042
     Dates: start: 20100103, end: 20100103
  21. SODIUM ALGINATE [Concomitant]
     Indication: PROPHYLAXIS
     Dosage: 10 ML, TID
     Route: 048
     Dates: start: 20091128, end: 20091224
  22. CARBAZOCHROME SODIUM SULFONATE [Concomitant]
     Indication: PROPHYLAXIS
     Dosage: 1 DF, TID
     Route: 048
     Dates: start: 20091128, end: 20091224
  23. MIXED AMINO ACID PREPARATION (WITH GLUCOSE) [Concomitant]
     Dosage: 500 ML, QD
     Route: 042
     Dates: start: 20091206, end: 20091210
  24. MIXED AMINO ACID PREPARATION (WITH GLUCOSE) [Concomitant]
     Dosage: 500 ML, QD
     Route: 042
     Dates: start: 20091226, end: 20100108
  25. FAMOTIDINE [Concomitant]
     Indication: PROPHYLAXIS
     Dosage: 1 DF, BID
     Route: 042
     Dates: start: 20091225, end: 20100108
  26. METHYLPREDNISOLONE SODIUM SUCCINATE [Concomitant]
     Indication: PREMEDICATION
     Dosage: 1 DF, QD
     Route: 042
     Dates: start: 20091214, end: 20091218
  27. RED BLOOD CELLS, CONCENTRATED [Concomitant]
     Dosage: 2 U, UNK
     Route: 042
     Dates: start: 20091125, end: 20091125
  28. RED BLOOD CELLS, CONCENTRATED [Concomitant]
     Dosage: 2 U, UNK
     Route: 042
     Dates: start: 20091214, end: 20091214
  29. RED BLOOD CELLS, CONCENTRATED [Concomitant]
     Dosage: 2 U, UNK
     Route: 042
     Dates: start: 20091229, end: 20091229
  30. PLATELETS [Concomitant]
     Dosage: 10 U, UNK
     Route: 042
     Dates: start: 20091210, end: 20091210
  31. PLATELETS [Concomitant]
     Dosage: 10 U, UNK
     Route: 042
     Dates: start: 20091216, end: 20091216
  32. PLATELETS [Concomitant]
     Dosage: 10 U, UNK
     Route: 042
     Dates: start: 20091226, end: 20091226
  33. PLATELETS [Concomitant]
     Dosage: 10 U, UNK
     Route: 042
     Dates: start: 20100101, end: 20100101
  34. PLATELETS [Concomitant]
     Dosage: 10 U, UNK
     Route: 042
     Dates: start: 20100106, end: 20100106
  35. FRESH FROZEN PLASMA [Concomitant]
     Indication: APLASTIC ANAEMIA
     Dosage: 2 U, UNK
     Route: 042
     Dates: start: 20100106, end: 20100108
  36. POTASSIUM L-ASPARTATE [Concomitant]
     Indication: HYPOKALAEMIA
     Dosage: 1 DF, TID
     Route: 048
     Dates: start: 20091220, end: 20091224
  37. MIXED AMINO ACID PREPARATION (WITH GLUCOSE) [Concomitant]
     Indication: PRODUCT USED FOR UNKNOWN INDICATION
     Dosage: 500 ML, QD
     Route: 042
     Dates: start: 20091126, end: 20091127
  38. RED BLOOD CELLS, CONCENTRATED [Concomitant]
     Dosage: 2 U, UNK
     Route: 042
     Dates: start: 20100103, end: 20100103
  39. PLATELETS [Concomitant]
     Dosage: 10 U, UNK
     Route: 042
     Dates: start: 20091205, end: 20091205
  40. OMEPRAZOLE [Concomitant]
     Indication: PROPHYLAXIS
     Dosage: 1 DF, QD
     Route: 048
     Dates: start: 20091128, end: 20091224
  41. MIXED AMINO ACID CARBOHYDRATE ELECTROLYTE VITAMIN COMBINED [Concomitant]
     Indication: PRODUCT USED FOR UNKNOWN INDICATION
     Dosage: 500 ML, TID
     Route: 042
     Dates: start: 20091124, end: 20091125
  42. THIAMINE DISULFIDE B6 B12 COMBINED DRUG [Concomitant]
     Dosage: 1 DF, QD
     Route: 042
     Dates: start: 20091206, end: 20091210
  43. POTASSIUM CHLORIDE [Concomitant]
     Indication: PRODUCT USED FOR UNKNOWN INDICATION
     Dosage: 1 DF, BID
     Route: 042
     Dates: start: 20091226, end: 20100108
  44. PREDNISOLONE ACETATE [Concomitant]
     Dosage: 1 DF, QD
     Route: 042
     Dates: start: 20100102, end: 20100108
  45. RED BLOOD CELLS, CONCENTRATED [Concomitant]
     Dosage: 2 U, UNK
     Route: 042
     Dates: start: 20100106, end: 20100106
  46. MAINTENANCE MEDIUM [Concomitant]
     Dosage: 500 ML, BID
     Route: 042
     Dates: start: 20091224, end: 20091225
  47. MAINTENANCE MEDIUM [Concomitant]
     Dosage: 500 ML, BID
     Route: 042
     Dates: start: 20091226, end: 20100108
  48. MIXED AMINO ACID PREPARATION (WITH GLUCOSE) [Concomitant]
     Dosage: 500 ML, QD
     Route: 042
     Dates: start: 20091202, end: 20091205
  49. ISOTONIC SODIUM CHLORIDE SOLUTION [Concomitant]
     Indication: PRODUCT USED FOR UNKNOWN INDICATION
     Dosage: 500 ML, BID
     Route: 065
     Dates: start: 20091222, end: 20091223
  50. RED BLOOD CELLS, CONCENTRATED [Concomitant]
     Dosage: 2 U, UNK
     Route: 042
     Dates: start: 20100101, end: 20100101
  51. PLATELETS [Concomitant]
     Indication: APLASTIC ANAEMIA
     Dosage: 10 U, UNK
     Route: 042
     Dates: start: 20091124, end: 20091124
  52. PLATELETS [Concomitant]
     Dosage: 10 U, UNK
     Route: 042
     Dates: start: 20091201, end: 20091201
  53. POLAPREZINC [Concomitant]
     Indication: PROPHYLAXIS
     Dosage: 1 DAY, BID
     Route: 048
     Dates: start: 20091128, end: 20091224
  54. MAINTENANCE MEDIUM [Concomitant]
     Indication: PRODUCT USED FOR UNKNOWN INDICATION
     Dosage: 500 ML, BID
     Route: 042
     Dates: start: 20091126, end: 20091127
  55. MAINTENANCE MEDIUM [Concomitant]
     Dosage: 500 ML, TID
     Route: 042
     Dates: start: 20091206, end: 20091210
  56. MIXED AMINO ACID PREPARATION (WITH GLUCOSE) [Concomitant]
     Dosage: 500 ML, QD
     Route: 042
     Dates: start: 20091224, end: 20091225
  57. POTASSIUM CHLORIDE [Concomitant]
     Dosage: 1 DF, QD
     Route: 042
     Dates: start: 20091226, end: 20100108
  58. RED BLOOD CELLS, CONCENTRATED [Concomitant]
     Indication: APLASTIC ANAEMIA
     Dosage: 4 U, UNK
     Route: 042
     Dates: start: 20091124, end: 20091124
  59. PLATELETS [Concomitant]
     Dosage: 10 U, UNK
     Route: 042
     Dates: start: 20091214, end: 20091214
  60. PLATELETS [Concomitant]
     Dosage: 10 U, UNK
     Route: 042
     Dates: start: 20091220, end: 20091220
  61. PLATELETS [Concomitant]
     Dosage: 10 U, UNK
     Route: 042
     Dates: start: 20100108, end: 20100108

REACTIONS (8)
  - ORAL CANDIDIASIS [None]
  - SUBARACHNOID HAEMORRHAGE [None]
  - HERPES ZOSTER [None]
  - GASTROINTESTINAL HAEMORRHAGE [None]
  - CEREBRAL INFARCTION [None]
  - CARDIAC FAILURE [None]
  - HYPOKALAEMIA [None]
  - SEPSIS [None]
